FAERS Safety Report 4421443-6 (Version None)
Quarter: 2004Q3

REPORT INFORMATION
  Report Type: 
  Country: None (occurrence: None)
  Receive Date: 20040709
  Receipt Date: 20040524
  Transmission Date: 20050211
  Serious: No
  Sender: FDA-Public Use
  Company Number: 2004S1000102

PATIENT
  Age: 74 Year
  Sex: Female

DRUGS (5)
  1. CUBICIN [Suspect]
     Indication: ENTEROCOCCAL INFECTION
     Dosage: 4 MG/KG; Q24H; IV
     Route: 042
  2. CUBICIN [Suspect]
     Indication: WOUND INFECTION
     Dosage: 4 MG/KG; Q24H; IV
     Route: 042
  3. CUBICIN [Suspect]
     Indication: WOUND INFECTION STAPHYLOCOCCAL
     Dosage: 4 MG/KG; Q24H; IV
     Route: 042
  4. CEFEPIME [Concomitant]
  5. TOBRAMYCIN [Concomitant]

REACTIONS (3)
  - EOSINOPHILIA [None]
  - LEUKOCYTOSIS [None]
  - RASH [None]
